FAERS Safety Report 9373901 (Version 1)
Quarter: 2013Q2

REPORT INFORMATION
  Report Type: Spontaneous
  Country: PH (occurrence: PH)
  Receive Date: 20130628
  Receipt Date: 20130628
  Transmission Date: 20140414
  Serious: Yes (Death)
  Sender: FDA-Public Use
  Company Number: PH-009507513-1306PHL013341

PATIENT
  Age: 67 Year
  Sex: Male

DRUGS (1)
  1. JANUMET [Suspect]
     Dosage: UNK
     Route: 048
     Dates: end: 2013

REACTIONS (1)
  - Death [Fatal]
